FAERS Safety Report 24625287 (Version 1)
Quarter: 2024Q4

REPORT INFORMATION
  Report Type: Spontaneous
  Country: US (occurrence: US)
  Receive Date: 20241115
  Receipt Date: 20241115
  Transmission Date: 20250115
  Serious: Yes (Hospitalization, Other)
  Sender: BLUEPRINT MEDICINES
  Company Number: US-Blueprint Medicines Corporation-5326

PATIENT
  Age: 21 Year
  Sex: Male

DRUGS (1)
  1. AYVAKIT [Suspect]
     Active Substance: AVAPRITINIB
     Indication: Brain neoplasm malignant
     Route: 065
     Dates: start: 20240701, end: 20241007

REACTIONS (3)
  - Seizure [Unknown]
  - Sluggishness [Unknown]
  - Fatigue [Unknown]

NARRATIVE: CASE EVENT DATE: 20241001
